FAERS Safety Report 5246002-7 (Version None)
Quarter: 2007Q1

REPORT INFORMATION
  Report Type: 
  Country: None (occurrence: None)
  Receive Date: 20070220
  Receipt Date: 20070202
  Transmission Date: 20070707
  Serious: Yes (Hospitalization)
  Sender: FDA-Public Use
  Company Number: 2007RR-05648

PATIENT
  Age: 38 Year
  Sex: Male

DRUGS (11)
  1. SIMVASTATIN [Suspect]
     Indication: BLOOD CHOLESTEROL
     Dosage: 20 MG, ORAL
     Route: 048
     Dates: end: 20070107
  2. AMISULPRIDE (AMISULPRIDE) [Concomitant]
  3. BECLOMETHASONE DIPROPIONATE [Concomitant]
  4. DIHYDROCODEINE (DIHYDROCODEINE) UNKNOWN [Concomitant]
  5. GABAPENTIN [Concomitant]
  6. LISINOPRIL [Concomitant]
  7. METFORMIN HYDROCHLORID UNKNOWN [Concomitant]
  8. PROCYCLIDINE HYDROCHLORIDE 2MG TAB [Concomitant]
  9. SALBUTAMOL (SALBUTAMOL) UNKNOWN [Concomitant]
  10. SERTRALINE [Concomitant]
  11. TRAMADOL HYDROCHLORIDE UNKNOWN [Concomitant]

REACTIONS (1)
  - RHABDOMYOLYSIS [None]
